FAERS Safety Report 4392619-1 (Version None)
Quarter: 2004Q3

REPORT INFORMATION
  Report Type: 
  Country: None (occurrence: None)
  Receive Date: 20040702
  Receipt Date: 20040621
  Transmission Date: 20050211
  Serious: No
  Sender: FDA-Public Use
  Company Number: 02100-JPN-04-0154

PATIENT
  Age: 84 Year
  Sex: Female

DRUGS (7)
  1. CILOSTAZOL [Suspect]
     Indication: CEREBRAL INFARCTION
     Dosage: SEE IMAGE
     Route: 048
     Dates: end: 20030101
  2. CILOSTAZOL [Suspect]
     Indication: CEREBRAL INFARCTION
     Dosage: SEE IMAGE
     Route: 048
     Dates: start: 20031202, end: 20040507
  3. INSULIN [Concomitant]
  4. GLIMEPIRIDE [Concomitant]
  5. PRAVASTATIN SODIUM [Concomitant]
  6. VOGLIBOSE [Concomitant]
  7. LAFUTIDINE [Concomitant]

REACTIONS (1)
  - PLATELET COUNT DECREASED [None]
